FAERS Safety Report 6120753-4 (Version None)
Quarter: 2009Q1

REPORT INFORMATION
  Report Type: 
  Country: None (occurrence: None)
  Receive Date: 20090317
  Receipt Date: 20090305
  Transmission Date: 20090719
  Serious: Yes (Hospitalization, Other)
  Sender: FDA-Public Use
  Company Number: BR-BAYER-200815239LA

PATIENT
  Age: 27 Year
  Sex: Female

DRUGS (1)
  1. YAZ [Suspect]
     Indication: ORAL CONTRACEPTION
     Route: 048
     Dates: start: 20070101, end: 20080616

REACTIONS (16)
  - AMENORRHOEA [None]
  - CAESAREAN SECTION [None]
  - DRUG EXPOSURE DURING PREGNANCY [None]
  - FATIGUE [None]
  - GASTRIC DISORDER [None]
  - GASTRITIS BACTERIAL [None]
  - HEADACHE [None]
  - HORMONE LEVEL ABNORMAL [None]
  - MIGRAINE [None]
  - PAIN [None]
  - PRE-ECLAMPSIA [None]
  - PREGNANCY ON ORAL CONTRACEPTIVE [None]
  - PREMATURE LABOUR [None]
  - SWELLING [None]
  - VOMITING [None]
  - VOMITING IN PREGNANCY [None]
